FAERS Safety Report 9345363 (Version 2)
Quarter: 2013Q2

REPORT INFORMATION
  Report Type: Spontaneous
  Country: FR (occurrence: FR)
  Receive Date: 20130613
  Receipt Date: 20130614
  Transmission Date: 20140414
  Serious: Yes (Death, Life-Threatening, Other)
  Sender: FDA-Public Use
  Company Number: FR-PFIZER INC-2013176730

PATIENT
  Age: 76 Year
  Sex: Female

DRUGS (7)
  1. CORDARONE [Suspect]
     Indication: ATRIAL FIBRILLATION
     Dosage: 400 MG, DAILY
     Route: 048
     Dates: start: 201302
  2. PRADAXA [Suspect]
     Indication: ATRIAL FIBRILLATION
     Dosage: 300 MG, DAILY
     Route: 048
     Dates: start: 201302
  3. TENORMINE [Concomitant]
     Dosage: UNK
  4. CRESTOR [Concomitant]
     Dosage: UNK
  5. APROVEL [Concomitant]
     Dosage: UNK
  6. DIFFU K [Concomitant]
     Dosage: UNK
  7. SERESTA [Concomitant]
     Dosage: UNK

REACTIONS (3)
  - Cerebral haematoma [Fatal]
  - Fall [Unknown]
  - Head injury [Unknown]
